FAERS Safety Report 16807920 (Version 2)
Quarter: 2019Q3

REPORT INFORMATION
  Report Type: Report from Study
  Country: TW (occurrence: TW)
  Receive Date: 20190915
  Receipt Date: 20190930
  Transmission Date: 20191005
  Serious: Yes (Other)
  Sender: FDA-Public Use
  Company Number: PHHY2019TW212638

PATIENT
  Age: 39 Year
  Sex: Female

DRUGS (31)
  1. FLUTICASONE. [Concomitant]
     Active Substance: FLUTICASONE
     Indication: RHINITIS ALLERGIC
     Dosage: 1 DF (PUFF), UNK
     Route: 050
     Dates: start: 20161116, end: 20161217
  2. ACTIFED [Concomitant]
     Dosage: 1 DF, UNK
     Route: 048
     Dates: start: 20161222, end: 20170119
  3. THIAMINE. [Concomitant]
     Active Substance: THIAMINE
     Indication: PROPHYLAXIS
     Dosage: 1 DF, UNK
     Route: 048
     Dates: start: 20170316, end: 20170610
  4. LEVOCETIRIZINE [Concomitant]
     Active Substance: LEVOCETIRIZINE
     Dosage: 5 MG, UNK
     Route: 048
     Dates: start: 20180419, end: 20180607
  5. ROSUVASTATIN. [Concomitant]
     Active Substance: ROSUVASTATIN
     Dosage: 5 MG, UNK
     Route: 048
     Dates: start: 20170308, end: 20170408
  6. TOPSYM [Concomitant]
     Indication: RHINITIS ALLERGIC
     Dosage: 10 G, UNK
     Route: 050
     Dates: start: 20180419, end: 20180607
  7. ROSUVASTATIN. [Concomitant]
     Active Substance: ROSUVASTATIN
     Indication: RHINITIS ALLERGIC
     Dosage: 5 MG, UNK
     Route: 048
     Dates: start: 20161116, end: 20161217
  8. ROSUVASTATIN. [Concomitant]
     Active Substance: ROSUVASTATIN
     Dosage: 5 MG, UNK
     Route: 048
     Dates: start: 20170621, end: 20170721
  9. ROSUVASTATIN. [Concomitant]
     Active Substance: ROSUVASTATIN
     Dosage: 5 MG, UNK
     Route: 048
     Dates: start: 20171225, end: 20180124
  10. FUSIDIC ACID [Concomitant]
     Active Substance: FUSIDIC ACID
     Indication: FIBROCYSTIC BREAST DISEASE
     Dosage: 5 G, UNK
     Route: 050
     Dates: start: 20180430, end: 20180510
  11. TASIGNA [Suspect]
     Active Substance: NILOTINIB
     Indication: CHRONIC MYELOID LEUKAEMIA
     Dosage: 600 OT, UNK
     Route: 048
     Dates: start: 20151127
  12. PIPRINHYDRINATE [Concomitant]
     Indication: RHINITIS ALLERGIC
     Dosage: 3 MG, UNK
     Route: 048
     Dates: start: 20171221, end: 20180104
  13. HIROS [Concomitant]
     Indication: RHINITIS ALLERGIC
     Dosage: 1 DF, UNK
     Route: 048
     Dates: start: 20180829
  14. DAILYCARE ACTIBEST [Concomitant]
     Indication: PROPHYLAXIS
     Dosage: UNK
     Route: 048
     Dates: start: 20170412
  15. BISOPROLOL [Concomitant]
     Active Substance: BISOPROLOL
     Indication: RHINITIS ALLERGIC
     Dosage: 1.25 MG, UNK
     Route: 048
     Dates: start: 20161116, end: 20161217
  16. BISOPROLOL [Concomitant]
     Active Substance: BISOPROLOL
     Dosage: 1.25 MG, UNK
     Route: 048
     Dates: start: 20170621, end: 20170721
  17. ACTIFED [Concomitant]
     Dosage: 1 DF, UNK
     Route: 048
     Dates: start: 20180419, end: 20180607
  18. ROSUVASTATIN. [Concomitant]
     Active Substance: ROSUVASTATIN
     Dosage: 10 MG, UNK
     Route: 048
     Dates: start: 20180319, end: 20181007
  19. BROEN C [Concomitant]
     Indication: RHINITIS ALLERGIC
     Dosage: 1 DF, UNK
     Route: 048
     Dates: start: 20171214, end: 20171221
  20. BISOPROLOL [Concomitant]
     Active Substance: BISOPROLOL
     Dosage: 1.25 MG, UNK
     Route: 048
     Dates: start: 20170308, end: 20170408
  21. BISOPROLOL [Concomitant]
     Active Substance: BISOPROLOL
     Dosage: 1.25 MG, UNK
     Route: 048
     Dates: start: 20170927, end: 20171027
  22. ACTIFED [Concomitant]
     Dosage: 1 DF, UNK
     Route: 048
     Dates: start: 20180808, end: 20180815
  23. TRIAMCINOLONE [Concomitant]
     Active Substance: TRIAMCINOLONE
     Indication: PROPHYLAXIS
     Dosage: UNK
     Route: 061
     Dates: start: 20170607, end: 20170614
  24. PREDNISOLONE. [Concomitant]
     Active Substance: PREDNISOLONE
     Indication: RHINITIS ALLERGIC
     Dosage: 5 MG, UNK
     Route: 048
     Dates: start: 20180808, end: 20180815
  25. MOMETASONE [Concomitant]
     Active Substance: MOMETASONE
     Indication: RHINITIS ALLERGIC
     Dosage: 1 DF (1 PUFF), UNK
     Route: 045
     Dates: start: 20171212, end: 20180108
  26. BISOPROLOL [Concomitant]
     Active Substance: BISOPROLOL
     Dosage: 1.25 MG, UNK
     Route: 048
     Dates: start: 20180319, end: 20181007
  27. LEVOCETIRIZINE [Concomitant]
     Active Substance: LEVOCETIRIZINE
     Indication: RHINITIS ALLERGIC
     Dosage: 5 MG, UNK
     Route: 048
     Dates: start: 20161116, end: 20161217
  28. BISOPROLOL [Concomitant]
     Active Substance: BISOPROLOL
     Dosage: 1.25 MG, UNK
     Route: 048
     Dates: start: 20171225, end: 20180124
  29. ACTIFED [Concomitant]
     Indication: RHINITIS ALLERGIC
     Dosage: 1 DF, UNK
     Route: 048
     Dates: start: 20161116, end: 20161121
  30. ACTIFED [Concomitant]
     Dosage: 1 DF, UNK
     Route: 048
     Dates: start: 20170213, end: 20170223
  31. ACTIFED [Concomitant]
     Dosage: 1 DF, UNK
     Route: 048
     Dates: start: 20180831, end: 20180907

REACTIONS (4)
  - Duodenal ulcer [Recovering/Resolving]
  - Gastrooesophageal reflux disease [Recovered/Resolved]
  - Oesophagitis [Recovered/Resolved]
  - Gastric ulcer [Recovering/Resolving]

NARRATIVE: CASE EVENT DATE: 20160830
